FAERS Safety Report 26040019 (Version 1)
Quarter: 2025Q4

REPORT INFORMATION
  Report Type: Spontaneous
  Country: US (occurrence: US)
  Receive Date: 20251113
  Receipt Date: 20251113
  Transmission Date: 20260118
  Serious: Yes (Other)
  Sender: DR REDDYS
  Company Number: US-DRL-USA-USA/2025/11/016776

PATIENT
  Age: 38 Year
  Sex: Female

DRUGS (2)
  1. TOPIRAMATE [Suspect]
     Active Substance: TOPIRAMATE
     Indication: Migraine
  2. TOPIRAMATE [Suspect]
     Active Substance: TOPIRAMATE

REACTIONS (2)
  - Myopia [Recovered/Resolved]
  - Angle closure glaucoma [Recovered/Resolved]
